FAERS Safety Report 10975317 (Version 3)
Quarter: 2015Q2

REPORT INFORMATION
  Report Type: Spontaneous
  Country: US (occurrence: US)
  Receive Date: 20150401
  Receipt Date: 20150501
  Transmission Date: 20150821
  Serious: Yes (Other)
  Sender: FDA-Public Use
  Company Number: US-UNITED THERAPEUTICS-UNT-2015-000179

PATIENT
  Age: 60 Year
  Sex: Female
  Weight: 78.5 kg

DRUGS (4)
  1. TYVASO [Suspect]
     Active Substance: TREPROSTINIL
     Indication: PULMONARY HYPERTENSION
     Dosage: 18-54 ?G, QID
     Dates: start: 20141114, end: 20150305
  2. TYVASO [Suspect]
     Active Substance: TREPROSTINIL
     Dosage: 18-54 ?G, QID
  3. TYVASO [Suspect]
     Active Substance: TREPROSTINIL
     Dosage: 18 ?G, BID
     Dates: end: 20150305
  4. ADCIRCA [Concomitant]
     Active Substance: TADALAFIL
     Indication: PRODUCT USED FOR UNKNOWN INDICATION

REACTIONS (20)
  - Oxygen saturation decreased [Unknown]
  - Abdominal discomfort [Unknown]
  - Palpitations [Unknown]
  - Fatigue [Unknown]
  - Abdominal distension [Unknown]
  - Headache [Unknown]
  - Diarrhoea [Unknown]
  - Dizziness [Unknown]
  - Abdominal pain upper [Unknown]
  - Bronchitis [Unknown]
  - Lethargy [Unknown]
  - Asthenia [Unknown]
  - Treatment noncompliance [Unknown]
  - Chest discomfort [Unknown]
  - Nausea [Unknown]
  - Drug dose omission [Unknown]
  - Oropharyngeal pain [Unknown]
  - Cough [Unknown]
  - Hunger [Unknown]
  - Malaise [Unknown]

NARRATIVE: CASE EVENT DATE: 201412
